FAERS Safety Report 17670778 (Version 1)
Quarter: 2020Q2

REPORT INFORMATION
  Report Type: Spontaneous
  Country: US (occurrence: US)
  Receive Date: 20200415
  Receipt Date: 20200415
  Transmission Date: 20200713
  Serious: Yes (Other)
  Sender: FDA-Public Use
  Company Number: None

PATIENT
  Age: 68 Year
  Sex: Female

DRUGS (1)
  1. DEXYCU [Suspect]
     Active Substance: DEXAMETHASONE
     Dosage: ?          OTHER FREQUENCY:ONE TIME INJECTION;?
     Route: 047

REACTIONS (5)
  - Impaired driving ability [None]
  - Corneal oedema [None]
  - Visual impairment [None]
  - Depression [None]
  - Visual acuity reduced [None]

NARRATIVE: CASE EVENT DATE: 20200226
